FAERS Safety Report 9245832 (Version 1)
Quarter: 2013Q2

REPORT INFORMATION
  Report Type: Spontaneous
  Country: DE (occurrence: DE)
  Receive Date: 20130422
  Receipt Date: 20130422
  Transmission Date: 20140414
  Serious: Yes (Other)
  Sender: FDA-Public Use
  Company Number: PHHY2013DE037512

PATIENT
  Age: 9 Year
  Sex: Male

DRUGS (1)
  1. EXJADE [Suspect]
     Indication: IRON OVERLOAD
     Dosage: 125 MG/ DAY
     Route: 048

REACTIONS (5)
  - Palpitations [Unknown]
  - Panic attack [Unknown]
  - Abdominal pain upper [Unknown]
  - Pain [Unknown]
  - Serum ferritin increased [Unknown]
